FAERS Safety Report 12654201 (Version 1)
Quarter: 2016Q3

REPORT INFORMATION
  Report Type: Spontaneous
  Country: US (occurrence: None)
  Receive Date: 20160815
  Receipt Date: 20160815
  Transmission Date: 20161109
  Serious: Yes (Other)
  Sender: FDA-Public Use
  Company Number: None

PATIENT
  Age: 67 Year
  Sex: Female

DRUGS (1)
  1. XELJANZ [Suspect]
     Active Substance: TOFACITINIB CITRATE
     Indication: RHEUMATOID ARTHRITIS
     Dosage: 1 TABLET (5MG) 2 TIMES PER DAY ORAL
     Route: 048
     Dates: start: 20160325

REACTIONS (2)
  - Increased tendency to bruise [None]
  - Drug ineffective [None]

NARRATIVE: CASE EVENT DATE: 201608
